FAERS Safety Report 5599866-1 (Version None)
Quarter: 2008Q1

REPORT INFORMATION
  Report Type: 
  Country: None (occurrence: None)
  Receive Date: 20080117
  Receipt Date: 20080105
  Transmission Date: 20080703
  Serious: Yes (Hospitalization, Other)
  Sender: FDA-Public Use
  Company Number: ADE2008-0102

PATIENT
  Age: 43 Year
  Sex: Female
  Weight: 52.1 kg

DRUGS (6)
  1. AMOXICILLIN [Suspect]
  2. AMOXICILLIN [Suspect]
  3. AVANDAMET [Suspect]
     Indication: TYPE 2 DIABETES MELLITUS
     Dosage: PO
     Route: 048
  4. GLICLAZIDE [Suspect]
  5. RAMIPRIL [Suspect]
  6. INSULIN [Concomitant]

REACTIONS (2)
  - ABORTION SPONTANEOUS [None]
  - DRUG EXPOSURE DURING PREGNANCY [None]
